FAERS Safety Report 8265509-1 (Version None)
Quarter: 2012Q2

REPORT INFORMATION
  Report Type: 
  Country: None (occurrence: None)
  Receive Date: 20120406
  Receipt Date: 20120402
  Transmission Date: 20120825
  Serious: Yes (Hospitalization)
  Sender: FDA-Public Use
  Company Number: ES-PFIZER INC-ES-WYE-H18524310

PATIENT
  Age: 47 Year
  Sex: Female
  Weight: 90.4 kg

DRUGS (6)
  1. CLORAZEPATE DIPOTASSIUM [Suspect]
     Dosage: 25 MG/25 MG/ 50 MG
     Dates: start: 20100730
  2. DIAZEPAM [Suspect]
     Dosage: 5 MG, SINGLE
     Route: 048
     Dates: start: 20101111, end: 20101111
  3. PACLITAXEL [Suspect]
     Indication: BREAST CANCER
     Dosage: 154 MG,  DAYS 1,8,15
     Route: 042
     Dates: start: 20100524
  4. TRASTUZUMAB [Suspect]
     Indication: BREAST CANCER
     Dosage: 180 MG, WEEKLY
     Route: 042
     Dates: start: 20100524
  5. LORMETAZEPAM [Suspect]
     Dosage: 2 MG, 1X/DAY
     Dates: start: 20100730
  6. ALPRAZOLAM [Suspect]
     Dosage: UNK

REACTIONS (1)
  - RESPIRATORY TRACT INFECTION [None]
